FAERS Safety Report 8494725-9 (Version None)
Quarter: 2012Q3

REPORT INFORMATION
  Report Type: 
  Country: None (occurrence: None)
  Receive Date: 20120709
  Receipt Date: 20120630
  Transmission Date: 20120928
  Serious: Yes (Life-Threatening, Hospitalization)
  Sender: FDA-Public Use
  Company Number: CA-JNJFOC-20120701216

PATIENT
  Sex: Female
  Weight: 112 kg

DRUGS (2)
  1. REMICADE [Suspect]
     Indication: CROHN'S DISEASE
     Route: 042
     Dates: start: 20111115, end: 20111115
  2. REMICADE [Suspect]
     Route: 042

REACTIONS (2)
  - PNEUMONIA STREPTOCOCCAL [None]
  - ACUTE RESPIRATORY DISTRESS SYNDROME [None]
